FAERS Safety Report 17239785 (Version 1)
Quarter: 2020Q1

REPORT INFORMATION
  Report Type: Report from Study
  Country: US (occurrence: US)
  Receive Date: 20200106
  Receipt Date: 20200106
  Transmission Date: 20200409
  Serious: Yes (Other)
  Sender: FDA-Public Use
  Company Number: US-BRISTOL-MYERS SQUIBB COMPANY-BMS-2019-125491

PATIENT
  Sex: Female
  Weight: 55.79 kg

DRUGS (1)
  1. ABATACEPT [Suspect]
     Active Substance: ABATACEPT
     Indication: RHEUMATOID ARTHRITIS
     Dosage: 1 DF= 4 UNITS NOT SPECIFIED, QWK
     Route: 065
     Dates: start: 20191207

REACTIONS (3)
  - Pain [Unknown]
  - Arthropathy [Unknown]
  - Rheumatoid arthritis [Unknown]
